FAERS Safety Report 21141370 (Version 1)
Quarter: 2022Q3

REPORT INFORMATION
  Report Type: Spontaneous
  Country: US (occurrence: None)
  Receive Date: 20220727
  Receipt Date: 20220727
  Transmission Date: 20221027
  Serious: No
  Sender: FDA-Public Use
  Company Number: None

PATIENT
  Age: 52 Year
  Sex: Female

DRUGS (1)
  1. OZEMPIC [Suspect]
     Active Substance: SEMAGLUTIDE
     Dosage: OTHER QUANTITY : 0.5 PER WEEK;?FREQUENCY : WEEKLY;?
     Dates: start: 20220610

REACTIONS (3)
  - Unresponsive to stimuli [None]
  - Liver disorder [None]
  - Therapy interrupted [None]

NARRATIVE: CASE EVENT DATE: 20220610
